FAERS Safety Report 9340304 (Version 1)
Quarter: 2013Q2

REPORT INFORMATION
  Report Type: Spontaneous
  Country: FR (occurrence: FR)
  Receive Date: 20130610
  Receipt Date: 20130610
  Transmission Date: 20140414
  Serious: Yes (Hospitalization)
  Sender: FDA-Public Use
  Company Number: FR-PFIZER INC-2013170608

PATIENT
  Age: 66 Year
  Sex: Male

DRUGS (13)
  1. SOLU-MEDROL [Suspect]
     Dosage: 80 MG
     Route: 042
     Dates: start: 20130416
  2. EMEND [Suspect]
     Dosage: 125 MG
     Route: 048
     Dates: start: 20130416
  3. GEMCITABINE ACCORD [Suspect]
     Dosage: UNK
     Route: 041
     Dates: start: 20130416
  4. POLARAMINE [Suspect]
     Dosage: 5 MG
     Route: 040
     Dates: start: 20130416
  5. ZOPHREN [Suspect]
     Dosage: 8 MG
     Route: 048
     Dates: start: 20130416
  6. ZESTORETIC [Concomitant]
  7. ZOCOR [Concomitant]
  8. OMACOR [Concomitant]
  9. LERCAN [Concomitant]
  10. LANZOR [Concomitant]
  11. CONTRAMAL [Concomitant]
  12. DOLIPRANE [Concomitant]
  13. ACTISKENAN [Concomitant]
     Dosage: 10 MG
     Dates: start: 20130416

REACTIONS (1)
  - Epistaxis [Recovered/Resolved]
